FAERS Safety Report 7773098-0 (Version None)
Quarter: 2011Q3

REPORT INFORMATION
  Report Type: 
  Country: None (occurrence: None)
  Receive Date: 20110922
  Receipt Date: 20110125
  Transmission Date: 20111222
  Serious: No
  Sender: FDA-Public Use
  Company Number: US-ASTRAZENECA-2006UW07546

PATIENT
  Age: 82 Month
  Sex: Male
  Weight: 45.4 kg

DRUGS (13)
  1. SEROQUEL [Suspect]
     Route: 048
     Dates: start: 20040101
  2. CLONIDINE [Concomitant]
     Indication: SLEEP DISORDER
     Dates: start: 20030211
  3. TRAZODONE HYDROCHLORIDE [Concomitant]
     Indication: SLEEP DISORDER
     Dosage: 100 - 250 MG
     Dates: start: 20021118
  4. TRILEPTAL [Concomitant]
     Indication: AFFECTIVE DISORDER
     Dates: start: 20021118
  5. RITALIN [Concomitant]
     Dosage: 5 - 30 MG
     Dates: start: 20021118
  6. METHYLPHENIDATE [Concomitant]
     Dates: start: 20100924
  7. SEROQUEL [Suspect]
     Indication: OPPOSITIONAL DEFIANT DISORDER
     Dosage: 100 - 300 MG
     Route: 048
     Dates: start: 20040121
  8. SEROQUEL [Suspect]
     Dosage: 50MG-400MG
     Route: 048
     Dates: start: 20101022
  9. LISINOPRIL [Concomitant]
     Dates: start: 20091106
  10. SEROQUEL [Suspect]
     Route: 048
     Dates: start: 20040101
  11. SEROQUEL [Suspect]
     Dosage: 50MG-400MG
     Route: 048
     Dates: start: 20101022
  12. SEROQUEL [Suspect]
     Indication: AUTISM
     Dosage: 100 - 300 MG
     Route: 048
     Dates: start: 20040121
  13. TRIAMCINOLONE ACETONIDE [Concomitant]
     Dates: start: 20100323

REACTIONS (6)
  - DYSPNOEA [None]
  - OBESITY [None]
  - GLUCOSE TOLERANCE IMPAIRED [None]
  - TYPE 2 DIABETES MELLITUS [None]
  - INSULIN RESISTANCE SYNDROME [None]
  - HYPERINSULINAEMIA [None]
